APPROVED DRUG PRODUCT: TRAMADOL HYDROCHLORIDE
Active Ingredient: TRAMADOL HYDROCHLORIDE
Strength: 300MG
Dosage Form/Route: TABLET, EXTENDED RELEASE;ORAL
Application: A200491 | Product #003
Applicant: PH HEALTH LTD
Approved: Jun 27, 2012 | RLD: No | RS: No | Type: DISCN